FAERS Safety Report 20037160 (Version 4)
Quarter: 2021Q4

REPORT INFORMATION
  Report Type: Other
  Country: US (occurrence: None)
  Receive Date: 20211105
  Receipt Date: 20211203
  Transmission Date: 20220303
  Serious: Yes (Hospitalization, Other)
  Sender: FDA-Public Use
  Company Number: US-ROCHE-2949245

PATIENT
  Sex: Male
  Weight: 63.560 kg

DRUGS (3)
  1. OCREVUS [Suspect]
     Active Substance: OCRELIZUMAB
     Indication: Multiple sclerosis
     Dosage: DATE OF PREVIOUS TREATMENT: 03/DEC/2018, 17/DEC/2018, 30/MAY/2019 AND DATE OF NEXT TREATMENT: 30/DEC
     Route: 042
     Dates: start: 20181203
  2. OCREVUS [Suspect]
     Active Substance: OCRELIZUMAB
     Route: 065
     Dates: start: 2018
  3. SULFAMETHOXAZOLE\TRIMETHOPRIM [Concomitant]
     Active Substance: SULFAMETHOXAZOLE\TRIMETHOPRIM
     Route: 048

REACTIONS (8)
  - Meningitis [Recovering/Resolving]
  - Petit mal epilepsy [Unknown]
  - Multiple sclerosis relapse [Recovered/Resolved]
  - West Nile viral infection [Recovered/Resolved]
  - Pain [Recovering/Resolving]
  - Pyrexia [Not Recovered/Not Resolved]
  - Vertigo [Recovering/Resolving]
  - Headache [Unknown]

NARRATIVE: CASE EVENT DATE: 20180101
